FAERS Safety Report 16123404 (Version 3)
Quarter: 2019Q2

REPORT INFORMATION
  Report Type: Spontaneous
  Country: US (occurrence: US)
  Receive Date: 20190327
  Receipt Date: 20190502
  Transmission Date: 20190711
  Serious: Yes (Other)
  Sender: FDA-Public Use
  Company Number: US-AKORN PHARMACEUTICALS-2019AKN00523

PATIENT
  Sex: Female
  Weight: 67.12 kg

DRUGS (6)
  1. MYORISAN [Suspect]
     Active Substance: ISOTRETINOIN
     Indication: ACNE
     Dosage: 60 MG
     Route: 048
     Dates: end: 201901
  2. MYORISAN [Suspect]
     Active Substance: ISOTRETINOIN
     Dosage: 30 MG, 2X/DAY
     Dates: start: 20190227, end: 20190313
  3. MYORISAN [Suspect]
     Active Substance: ISOTRETINOIN
     Dosage: 40 MG
     Route: 048
  4. MYORISAN [Suspect]
     Active Substance: ISOTRETINOIN
     Indication: ACNE
     Dosage: UNK
     Route: 048
     Dates: start: 201811
  5. MYORISAN [Suspect]
     Active Substance: ISOTRETINOIN
     Dosage: ^INCREASED TO 80 MG^
     Route: 048
     Dates: start: 201901, end: 20190227
  6. CONCERTA [Concomitant]
     Active Substance: METHYLPHENIDATE HYDROCHLORIDE

REACTIONS (11)
  - Lip haemorrhage [Recovered/Resolved]
  - Chapped lips [Recovered/Resolved]
  - Rash [Recovered/Resolved]
  - Impulse-control disorder [Recovering/Resolving]
  - Communication disorder [Not Recovered/Not Resolved]
  - Depression [Unknown]
  - Hypersexuality [Not Recovered/Not Resolved]
  - Burning sensation [Recovered/Resolved]
  - Memory impairment [Not Recovered/Not Resolved]
  - Cheilitis [Recovered/Resolved]
  - Disturbance in attention [Not Recovered/Not Resolved]

NARRATIVE: CASE EVENT DATE: 2018
